FAERS Safety Report 7822721-0 (Version None)
Quarter: 2011Q4

REPORT INFORMATION
  Report Type: 
  Country: None (occurrence: None)
  Receive Date: 20111018
  Receipt Date: 20111005
  Transmission Date: 20120403
  Serious: Yes (Hospitalization)
  Sender: FDA-Public Use
  Company Number: IL-ROCHE-793785

PATIENT
  Sex: Male
  Weight: 89 kg

DRUGS (13)
  1. GLUCOPHAGE [Concomitant]
  2. RAMIPRIL [Concomitant]
  3. VEMURAFENIB [Suspect]
     Dosage: TEMPORARILY INTERRUPTED: 26 JULY 2011
     Route: 048
     Dates: start: 20110725, end: 20110726
  4. ASPIRIN [Concomitant]
  5. VEMURAFENIB [Suspect]
     Indication: METASTATIC MALIGNANT MELANOMA
     Dosage: LAST DOSE PRIOR TO SAE: 25 JULY 2011.
     Route: 048
     Dates: start: 20110713, end: 20110725
  6. AMLODIPINE [Concomitant]
  7. SIMVASTATIN [Concomitant]
  8. RAFAPEN [Concomitant]
  9. AMLODIPINE [Concomitant]
  10. PREDNISONE [Concomitant]
     Dates: start: 20110726, end: 20110731
  11. VEMURAFENIB [Suspect]
     Route: 048
  12. AMILORIDE HYDROCHLORIDE [Concomitant]
  13. PREDNISONE [Concomitant]

REACTIONS (1)
  - BLOOD CREATININE INCREASED [None]
